FAERS Safety Report 11346005 (Version 1)
Quarter: 2015Q3

REPORT INFORMATION
  Report Type: Spontaneous
  Country: US (occurrence: US)
  Receive Date: 20150803
  Receipt Date: 20150803
  Transmission Date: 20151125
  Serious: No
  Sender: FDA-Public Use
  Company Number: US-ELI_LILLY_AND_COMPANY-US200910007368

PATIENT
  Sex: Female

DRUGS (4)
  1. ADDERALL XR [Concomitant]
     Active Substance: AMPHETAMINE ASPARTATE\AMPHETAMINE SULFATE\DEXTROAMPHETAMINE SACCHARATE\DEXTROAMPHETAMINE SULFATE
     Dosage: UNK, UNKNOWN
     Route: 065
  2. STRATTERA [Suspect]
     Active Substance: ATOMOXETINE HYDROCHLORIDE
     Dosage: UNK, UNKNOWN
     Route: 065
     Dates: start: 2009
  3. STRATTERA [Suspect]
     Active Substance: ATOMOXETINE HYDROCHLORIDE
     Dosage: UNK, UNKNOWN
     Route: 065
     Dates: end: 2008
  4. STRATTERA [Suspect]
     Active Substance: ATOMOXETINE HYDROCHLORIDE
     Dosage: UNK, UNKNOWN
     Route: 065
     Dates: end: 2009

REACTIONS (2)
  - Drug withdrawal syndrome [Unknown]
  - Tic [Unknown]
